FAERS Safety Report 15307115 (Version 4)
Quarter: 2018Q4

REPORT INFORMATION
  Report Type: Report from Study
  Country: DE (occurrence: DE)
  Receive Date: 20180822
  Receipt Date: 20181228
  Transmission Date: 20190204
  Serious: Yes (Hospitalization)
  Sender: FDA-Public Use
  Company Number: DE-BIOGEN-2018BI00622950

PATIENT
  Age: 41 Year
  Sex: Male
  Weight: 100 kg

DRUGS (6)
  1. VITAMIN B6 [Concomitant]
     Active Substance: PYRIDOXINE HYDROCHLORIDE
     Indication: VITAMIN SUPPLEMENTATION
     Route: 065
     Dates: start: 20150519
  2. TYSABRI [Suspect]
     Active Substance: NATALIZUMAB
     Indication: MULTIPLE SCLEROSIS
     Dosage: END DATE: BETWEEN 17 MAY 2018 TO 12 JUL 2018
     Route: 042
     Dates: start: 20140805
  3. FALITHROM [Concomitant]
     Active Substance: PHENPROCOUMON
     Indication: BLOOD HOMOCYSTEINE ABNORMAL
     Route: 048
     Dates: start: 20130501
  4. MAGNESIUM VERLA [Concomitant]
     Active Substance: MAGNESIUM
     Indication: PROPHYLAXIS
     Route: 048
     Dates: start: 20171215
  5. VALDOXAN [Concomitant]
     Active Substance: AGOMELATINE
     Indication: DEPRESSION
     Route: 048
     Dates: start: 20160815
  6. VITAMINE B12 [Concomitant]
     Active Substance: CYANOCOBALAMIN
     Indication: VITAMIN SUPPLEMENTATION
     Route: 065
     Dates: start: 20150519

REACTIONS (2)
  - Hand fracture [Recovered/Resolved]
  - Fall [Recovered/Resolved]

NARRATIVE: CASE EVENT DATE: 20180605
